FAERS Safety Report 5670335-3 (Version None)
Quarter: 2008Q2

REPORT INFORMATION
  Report Type: 
  Country: None (occurrence: None)
  Receive Date: 20080229
  Receipt Date: 20070620
  Transmission Date: 20081010
  Serious: Yes (Other)
  Sender: FDA-Public Use
  Company Number: 242798

PATIENT
  Age: 16 Year
  Sex: Male
  Weight: 105.2 kg

DRUGS (3)
  1. NUTROPIN [Suspect]
     Indication: CRANIOPHARYNGIOMA
     Dosage: 44 MG, SUBCUTANEOUS
     Route: 058
     Dates: start: 20061027, end: 20070524
  2. ADDERALL (AMPHETAMINE ASPARTATE, AMPHETAMINE SULFATE, DEXTROAMPHETAMIN [Concomitant]
  3. CLONIDINE [Concomitant]

REACTIONS (1)
  - EPIPHYSIOLYSIS [None]
